FAERS Safety Report 9394550 (Version 1)
Quarter: 2013Q3

REPORT INFORMATION
  Report Type: Spontaneous
  Country: US (occurrence: US)
  Receive Date: 20130711
  Receipt Date: 20130711
  Transmission Date: 20140515
  Serious: Yes (Other)
  Sender: FDA-Public Use
  Company Number: US-ELI_LILLY_AND_COMPANY-US201307000414

PATIENT
  Age: 56 Year
  Sex: Female

DRUGS (2)
  1. EVISTA [Suspect]
     Indication: BONE DENSITY DECREASED
     Dosage: 60 MG, QD
     Route: 065
     Dates: start: 2006, end: 2013
  2. TYLENOL                            /00020001/ [Concomitant]

REACTIONS (3)
  - Osteonecrosis [Recovered/Resolved]
  - Foot fracture [Recovered/Resolved]
  - Bone density decreased [Recovered/Resolved]
